FAERS Safety Report 5465627-7 (Version None)
Quarter: 2007Q3

REPORT INFORMATION
  Report Type: 
  Country: None (occurrence: None)
  Receive Date: 20070919
  Receipt Date: 20070919
  Transmission Date: 20080115
  Serious: Yes (Other)
  Sender: FDA-Public Use
  Company Number: None

PATIENT
  Sex: Male
  Weight: 167.8309 kg

DRUGS (2)
  1. CEFUROXIME AXETIL [Suspect]
     Indication: PHARYNGOLARYNGEAL PAIN
     Dosage: ONE TWICE DAILY FOR 10 DAYS PO
     Route: 048
     Dates: start: 20070825, end: 20070825
  2. CEFUROXIME AXETIL [Suspect]
     Indication: UPPER RESPIRATORY TRACT INFECTION
     Dosage: ONE TWICE DAILY FOR 10 DAYS PO
     Route: 048
     Dates: start: 20070825, end: 20070825

REACTIONS (7)
  - DIARRHOEA [None]
  - HAEMATOCHEZIA [None]
  - NAUSEA [None]
  - PRURITUS [None]
  - RASH [None]
  - SWELLING [None]
  - VOMITING [None]
